FAERS Safety Report 7552359-4 (Version None)
Quarter: 2011Q2

REPORT INFORMATION
  Report Type: 
  Country: None (occurrence: None)
  Receive Date: 20110616
  Receipt Date: 20080430
  Transmission Date: 20111010
  Serious: Yes (Hospitalization, Other)
  Sender: FDA-Public Use
  Company Number: PHHY2008US07012

PATIENT
  Age: 51 Year
  Sex: Male

DRUGS (9)
  1. MULTI-VITAMINS [Concomitant]
  2. THIAMINE [Concomitant]
  3. B6 [Concomitant]
  4. SINGULAIR [Concomitant]
  5. CLOZAPINE [Suspect]
     Route: 048
  6. INH [Concomitant]
  7. ALBUTEROL SULFATE AUTOHALER [Concomitant]
  8. ADVAIR DISKUS 100/50 [Concomitant]
  9. SPIRIVA [Concomitant]

REACTIONS (2)
  - HALLUCINATION, AUDITORY [None]
  - PROSTATE CANCER [None]
